FAERS Safety Report 4994386-7 (Version None)
Quarter: 2006Q1

REPORT INFORMATION
  Report Type: 
  Country: None (occurrence: None)
  Receive Date: 20060310
  Receipt Date: 20051130
  Transmission Date: 20060701
  Serious: No
  Sender: FDA-Public Use
  Company Number: IND-AE-05-SAN-069

PATIENT
  Age: 65 Year
  Sex: Female
  Weight: 62.5964 kg

DRUGS (8)
  1. SANCTURA [Suspect]
     Indication: HYPERTONIC BLADDER
     Dosage: 20MG - QD - ORAL
     Route: 048
     Dates: start: 20051017, end: 20051025
  2. ABILIFY [Concomitant]
  3. ADVAIR DISKUS 100/50 [Concomitant]
  4. BUPROPRION [Concomitant]
  5. POTCHLOR [Concomitant]
  6. PRAVACHOL [Concomitant]
  7. PREMARIN [Concomitant]
  8. SYNTHROID [Concomitant]

REACTIONS (12)
  - ABDOMINAL PAIN UPPER [None]
  - BACK PAIN [None]
  - DIZZINESS [None]
  - EPISTAXIS [None]
  - ESCHERICHIA INFECTION [None]
  - FATIGUE [None]
  - HAEMOPTYSIS [None]
  - HEADACHE [None]
  - NAUSEA [None]
  - POLLAKIURIA [None]
  - PYREXIA [None]
  - URINE ODOUR ABNORMAL [None]
